FAERS Safety Report 23319125 (Version 1)
Quarter: 2023Q4

REPORT INFORMATION
  Report Type: Spontaneous
  Country: KR (occurrence: KR)
  Receive Date: 20231220
  Receipt Date: 20231220
  Transmission Date: 20240110
  Serious: Yes (Death, Hospitalization, Other)
  Sender: FDA-Public Use
  Company Number: KR-CELLTRION INC.-2023KR023930

PATIENT

DRUGS (6)
  1. RITUXIMAB [Suspect]
     Active Substance: RITUXIMAB
     Indication: Post transplant lymphoproliferative disorder
     Dosage: 375 MG/M2 FOR 6 MONTHS
  2. BASILIXIMAB [Suspect]
     Active Substance: BASILIXIMAB
     Indication: Post transplant lymphoproliferative disorder
  3. TACROLIMUS [Suspect]
     Active Substance: TACROLIMUS
     Indication: Post transplant lymphoproliferative disorder
  4. MYCOPHENOLATE MOFETIL [Suspect]
     Active Substance: MYCOPHENOLATE MOFETIL
     Indication: Post transplant lymphoproliferative disorder
  5. SIROLIMUS [Suspect]
     Active Substance: SIROLIMUS
     Indication: Post transplant lymphoproliferative disorder
  6. DEXAMETHASONE [Suspect]
     Active Substance: DEXAMETHASONE
     Indication: Post transplant lymphoproliferative disorder
     Dosage: 4 MG, Q8HR, DAYS 1-7

REACTIONS (7)
  - Death [Fatal]
  - Acute hepatic failure [Unknown]
  - Flank pain [Unknown]
  - Jaundice [Unknown]
  - Pyrexia [Unknown]
  - Abdominal pain [Unknown]
  - Intentional product use issue [Unknown]
